FAERS Safety Report 25995022 (Version 2)
Quarter: 2025Q4

REPORT INFORMATION
  Report Type: Spontaneous
  Country: EU (occurrence: EU)
  Receive Date: 20251104
  Receipt Date: 20251127
  Transmission Date: 20260117
  Serious: Yes (Hospitalization)
  Sender: AUROBINDO
  Company Number: EU-002147023-NVSC2025DE163014

PATIENT
  Sex: Female

DRUGS (3)
  1. LETROZOLE [Suspect]
     Active Substance: LETROZOLE
     Indication: Hormone receptor positive HER2 negative breast cancer
     Dosage: 2.5 MILLIGRAM, ONCE A DAY (2.5 MG, QD (TOTAL DAILY DOSE))
     Dates: start: 20250910
  2. KISQALI [Suspect]
     Active Substance: RIBOCICLIB SUCCINATE
     Indication: Hormone receptor positive HER2 negative breast cancer
     Dosage: 400 MILLIGRAM, ONCE A DAY (400 MG, QD (TOTAL DAILY DOSE,21 DAYS DAILY INTAKE, 7 DAYS PAUSE))
     Dates: start: 20250910, end: 20251007
  3. KISQALI [Suspect]
     Active Substance: RIBOCICLIB SUCCINATE
     Dosage: 400 MILLIGRAM, ONCE A DAY (400 MG, QD (TOTAL DAILY DOSE,21 DAYS DAILY INTAKE, 7 DAYS PAUSE))
     Dates: start: 20251015

REACTIONS (2)
  - Cholelithiasis [Recovered/Resolved]
  - No adverse event [Unknown]

NARRATIVE: CASE EVENT DATE: 20251013
